FAERS Safety Report 17573032 (Version 4)
Quarter: 2021Q4

REPORT INFORMATION
  Report Type: Spontaneous
  Country: DE (occurrence: DE)
  Receive Date: 20200323
  Receipt Date: 20211121
  Transmission Date: 20220303
  Serious: Yes (Life-Threatening, Hospitalization, Other)
  Sender: FDA-Public Use
  Company Number: DE-009507513-2003DEU005886

PATIENT
  Age: 70 Year
  Sex: Male
  Weight: 98.6 kg

DRUGS (19)
  1. NOXAFIL [Suspect]
     Active Substance: POSACONAZOLE
     Indication: Antifungal prophylaxis
     Dosage: 300 MILLIGRAM, 1XDAY
     Route: 048
     Dates: start: 20191028, end: 20191029
  2. CYTARABINE [Suspect]
     Active Substance: CYTARABINE
     Indication: Acute myeloid leukaemia
     Dosage: 200 MILLIGRAM/SQ. METER, DAILY, BY CONTINUOS INFUSION
     Route: 041
     Dates: start: 20191028, end: 20191107
  3. CYTARABINE [Suspect]
     Active Substance: CYTARABINE
     Dosage: 404 MILLIGRAM, ONCE
     Route: 041
     Dates: start: 20191028, end: 20191028
  4. DAUNORUBICIN HYDROCHLORIDE [Suspect]
     Active Substance: DAUNORUBICIN HYDROCHLORIDE
     Indication: Acute myeloid leukaemia
     Dosage: 60 MILLIGRAM/SQ. METER, DAILY, BY CONTINUOS INFUSION
     Route: 041
     Dates: start: 20191028, end: 20191106
  5. DAUNORUBICIN HYDROCHLORIDE [Suspect]
     Active Substance: DAUNORUBICIN HYDROCHLORIDE
     Dosage: 121 MILLIGRAM, ONCE
     Route: 041
     Dates: start: 20191029, end: 20191029
  6. FAMOTIDINE [Concomitant]
     Active Substance: FAMOTIDINE
     Indication: Prophylaxis
     Dosage: UNK
     Dates: start: 20191024
  7. POLYETHYLENE GLYCOLS [Concomitant]
     Active Substance: POLYETHYLENE GLYCOLS
     Indication: Constipation prophylaxis
     Dosage: UNK
     Dates: start: 20191025
  8. SITAGLIPTIN PHOSPHATE [Concomitant]
     Active Substance: SITAGLIPTIN PHOSPHATE
     Indication: Type 2 diabetes mellitus
     Dosage: UNK
     Dates: start: 20191022
  9. SULFAMETHOXAZOLE\TRIMETHOPRIM [Concomitant]
     Active Substance: SULFAMETHOXAZOLE\TRIMETHOPRIM
     Indication: Antifungal prophylaxis
     Dosage: UNK
     Dates: start: 20191023
  10. ALLOPURINOL [Concomitant]
     Active Substance: ALLOPURINOL
     Indication: Prophylaxis
     Dosage: UNK
     Dates: start: 20191024
  11. INSULIN GLARGINE [Concomitant]
     Active Substance: INSULIN GLARGINE
     Indication: Diabetes mellitus
     Dosage: UNK
     Dates: start: 20191024, end: 20191030
  12. FUROSEMIDE [Concomitant]
     Active Substance: FUROSEMIDE
     Dosage: UNK
     Dates: start: 20191029, end: 20191030
  13. ENOXAPARIN SODIUM [Concomitant]
     Active Substance: ENOXAPARIN SODIUM
     Indication: Thrombosis prophylaxis
     Dosage: UNK
     Dates: start: 20191024
  14. ACETAMINOPHEN [Concomitant]
     Active Substance: ACETAMINOPHEN
     Dosage: UNK
     Dates: start: 20201025, end: 20201025
  15. LAXANS-RATIOPHARM PICO [Concomitant]
     Dosage: UNK
     Dates: start: 20191024, end: 20191026
  16. LAXANS [BISACODYL] [Concomitant]
     Dosage: UNK
     Dates: start: 20191027, end: 20191027
  17. LACTULOSE [Concomitant]
     Active Substance: LACTULOSE
     Dosage: UNK
     Dates: start: 20191024, end: 20191030
  18. INSULIN CS NORMAL [Concomitant]
     Dosage: UNK
     Dates: start: 20191022, end: 20191030
  19. GRANISETRON HYDROCHLORIDE [Concomitant]
     Active Substance: GRANISETRON HYDROCHLORIDE
     Dosage: UNK
     Dates: start: 20191028, end: 20191030

REACTIONS (3)
  - Blood lactate dehydrogenase increased [Recovered/Resolved]
  - Myocardial ischaemia [Recovered/Resolved]
  - Febrile neutropenia [Recovered/Resolved]

NARRATIVE: CASE EVENT DATE: 20191029
